FAERS Safety Report 25011571 (Version 1)
Quarter: 2025Q1

REPORT INFORMATION
  Report Type: Spontaneous
  Country: US (occurrence: US)
  Receive Date: 20250226
  Receipt Date: 20250226
  Transmission Date: 20250409
  Serious: Yes (Other)
  Sender: COOPERSURGICAL
  Company Number: US-COOPERSURGICAL, INC.-2025CPS001289

PATIENT
  Sex: Female
  Weight: 61.224 kg

DRUGS (5)
  1. PARAGARD T 380A [Suspect]
     Active Substance: COPPER
     Indication: Contraception
     Route: 015
     Dates: start: 2019
  2. LUPRON [Concomitant]
     Active Substance: LEUPROLIDE ACETATE
     Dates: start: 201811
  3. ^TELEXA^ [Concomitant]
     Dates: start: 2011, end: 2021
  4. NORTRIPTYLINE [Concomitant]
     Active Substance: NORTRIPTYLINE
     Dates: start: 2011, end: 2021
  5. KLONOPIN [Concomitant]
     Active Substance: CLONAZEPAM
     Dates: start: 201212, end: 202008

REACTIONS (9)
  - Laparotomy [Recovered/Resolved]
  - Uterine disorder [Unknown]
  - Embedded device [Recovered/Resolved]
  - Endometriosis [Unknown]
  - Uterine scar [Unknown]
  - Illness [Unknown]
  - Abdominal pain upper [Unknown]
  - Pain [Unknown]
  - Abdominal pain lower [Unknown]

NARRATIVE: CASE EVENT DATE: 20190101
